FAERS Safety Report 7551311-2 (Version None)
Quarter: 2011Q2

REPORT INFORMATION
  Report Type: 
  Country: None (occurrence: None)
  Receive Date: 20110616
  Receipt Date: 20110614
  Transmission Date: 20111010
  Serious: Yes (Hospitalization)
  Sender: FDA-Public Use
  Company Number: ES-PFIZER INC-2011129615

PATIENT
  Age: 71 Year
  Sex: Male

DRUGS (6)
  1. CELLCEPT [Concomitant]
     Indication: RENAL TRANSPLANT
     Dosage: 250 MG, UNK
     Route: 048
     Dates: start: 20010101, end: 20091229
  2. FUROSEMIDE [Interacting]
     Indication: CARDIAC FAILURE
     Dosage: 40 MG, UNK
     Route: 048
     Dates: start: 20090701, end: 20091229
  3. TROMALYT [Concomitant]
     Indication: PROPHYLAXIS
     Dosage: 150 MG, UNK
     Route: 048
     Dates: start: 20091201, end: 20091229
  4. SIROLIMUS [Interacting]
     Indication: RENAL TRANSPLANT
     Dosage: UNK
     Route: 048
     Dates: start: 20091201, end: 20091224
  5. ALDACTONE [Suspect]
     Indication: CARDIAC FAILURE
     Dosage: 25 MG, UNK
     Route: 048
     Dates: start: 20091201, end: 20091224
  6. AMIODARONE HCL [Concomitant]
     Indication: ATRIAL FIBRILLATION
     Dosage: 200 MG, UNK
     Route: 048
     Dates: start: 20060401, end: 20091229

REACTIONS (3)
  - HYPERKALAEMIA [None]
  - DRUG INTERACTION [None]
  - RENAL FAILURE ACUTE [None]
